FAERS Safety Report 6069787-9 (Version None)
Quarter: 2009Q1

REPORT INFORMATION
  Report Type: 
  Country: None (occurrence: None)
  Receive Date: 20090204
  Receipt Date: 20090204
  Transmission Date: 20090719
  Serious: Yes (Other)
  Sender: FDA-Public Use
  Company Number: None

PATIENT
  Age: 6 Year
  Sex: Female
  Weight: 19.9583 kg

DRUGS (2)
  1. SINGULAIR [Suspect]
     Indication: ASTHMA
     Dosage: 1 CHEWABLE 5MG TABLET ONCE DAILY PO
     Route: 048
     Dates: start: 20050627, end: 20090127
  2. SINGULAIR [Suspect]
     Indication: MULTIPLE ALLERGIES
     Dosage: 1 CHEWABLE 5MG TABLET ONCE DAILY PO
     Route: 048
     Dates: start: 20050627, end: 20090127

REACTIONS (10)
  - AGGRESSION [None]
  - ALOPECIA [None]
  - ANGER [None]
  - ASTHMA [None]
  - CONDITION AGGRAVATED [None]
  - DECREASED APPETITE [None]
  - HAEMORRHAGE [None]
  - SELF INJURIOUS BEHAVIOUR [None]
  - SUICIDAL IDEATION [None]
  - WEIGHT GAIN POOR [None]
